FAERS Safety Report 8219810-8 (Version None)
Quarter: 2012Q1

REPORT INFORMATION
  Report Type: 
  Country: None (occurrence: None)
  Receive Date: 20120319
  Receipt Date: 20120314
  Transmission Date: 20120608
  Serious: Yes (Other)
  Sender: FDA-Public Use
  Company Number: AU-PFIZER INC-2012037655

PATIENT
  Age: 73 Year
  Sex: Female

DRUGS (11)
  1. BACLOFEN [Concomitant]
  2. LASIX [Concomitant]
  3. TYSABRI [Suspect]
  4. CARTIA XT [Concomitant]
  5. PANADOL OSTEO [Concomitant]
  6. LYRICA [Suspect]
     Indication: PAIN
     Dosage: 75 MG IN THE MORNING, 150MG AT NIGHT
     Route: 048
     Dates: start: 20090101
  7. DITROPAN [Concomitant]
  8. LIPITOR [Concomitant]
  9. LEXAPRO [Concomitant]
  10. ARCOXIA [Concomitant]
  11. DI-GESIC [Concomitant]

REACTIONS (3)
  - BONE MARROW FAILURE [None]
  - THROMBOCYTOPENIA [None]
  - PANCYTOPENIA [None]
